FAERS Safety Report 23266576 (Version 2)
Quarter: 2023Q4

REPORT INFORMATION
  Report Type: Spontaneous
  Country: US (occurrence: US)
  Receive Date: 20231206
  Receipt Date: 20231214
  Transmission Date: 20240110
  Serious: Yes (Life-Threatening, Hospitalization, Other)
  Sender: FDA-Public Use
  Company Number: US-MLMSERVICE-20231115-4661141-1

PATIENT
  Age: 15 Year
  Sex: Female
  Weight: 96 kg

DRUGS (8)
  1. ESOMEPRAZOLE [Suspect]
     Active Substance: ESOMEPRAZOLE
     Indication: Gastrooesophageal reflux disease
     Dosage: UNKNOWN
     Route: 065
  2. METHOTREXATE [Suspect]
     Active Substance: METHOTREXATE
     Indication: Central nervous system leukaemia
     Dosage: 100 MILLIGRAM/SQ. METER, ONE CYCLE, CAPIZZI CYCLE, STARTING AT A DOSE OF 100 MG/M2/DAY
     Route: 042
  3. METHOTREXATE [Suspect]
     Active Substance: METHOTREXATE
     Indication: B-cell type acute leukaemia
     Dosage: 150 MILLIGRAM/SQ. METER, ONE CYCLE, STARTING AT A DOSE OF 100 MG/M2/DAY AND ESCALATING BY 50 MG/M2 O
     Route: 042
  4. METHOTREXATE [Suspect]
     Active Substance: METHOTREXATE
     Dosage: 200 MILLIGRAM/SQ. METER, ONE CYCLE, STARTING AT A DOSE OF 100 MG/M2/DAY AND ESCALATING BY 50 MG/M2 O
     Route: 042
  5. METHOTREXATE [Suspect]
     Active Substance: METHOTREXATE
     Dosage: 250 MILLIGRAM/SQ. METER, ONE CYCLE, STARTING AT A DOSE OF 100 MG/M2/DAY AND ESCALATING BY 50 MG/M2 O
     Route: 042
  6. METHOTREXATE [Suspect]
     Active Substance: METHOTREXATE
     Dosage: 300 MILLIGRAM/SQ. METER, ONE CYCLE, STARTING AT A DOSE OF 100 MG/M2/DAY AND ESCALATING BY 50 MG/M2 O
     Route: 042
  7. PEGASPARGASE [Suspect]
     Active Substance: PEGASPARGASE
     Indication: Central nervous system leukaemia
     Dosage: 2500 IU/M2/DOSE (WHICH, FOR THE PATIENT, WAS CAPPED AT 3750 INTERNATIONAL UNITS/M2/DOSE), WAS ADMINI
     Route: 065
  8. PEGASPARGASE [Suspect]
     Active Substance: PEGASPARGASE
     Indication: B precursor type acute leukaemia

REACTIONS (9)
  - Multiple organ dysfunction syndrome [Recovering/Resolving]
  - Drug clearance decreased [Unknown]
  - Hepatic steatosis [Recovering/Resolving]
  - Acute kidney injury [Recovering/Resolving]
  - Chemotherapeutic drug level increased [Recovered/Resolved]
  - Acute hepatic failure [Recovering/Resolving]
  - Drug interaction [Recovering/Resolving]
  - Disease progression [Recovering/Resolving]
  - Pancreatitis [Recovering/Resolving]
